FAERS Safety Report 13416612 (Version 1)
Quarter: 2017Q2

REPORT INFORMATION
  Report Type: Spontaneous
  Country: SE (occurrence: SE)
  Receive Date: 20170407
  Receipt Date: 20170407
  Transmission Date: 20170830
  Serious: Yes (Hospitalization)
  Sender: FDA-Public Use
  Company Number: SE-PURDUE PHARMA-GBR-2017-0044485

PATIENT
  Age: 26 Year
  Sex: Female

DRUGS (11)
  1. PLAQUENIL                          /00072602/ [Suspect]
     Active Substance: HYDROXYCHLOROQUINE DIPHOSPHATE
     Indication: SUICIDE ATTEMPT
     Dosage: 4 G, SINGLE
     Route: 048
     Dates: start: 20160827, end: 20160827
  2. LAMOTRIGINE. [Concomitant]
     Active Substance: LAMOTRIGINE
  3. BETAPRED [Suspect]
     Active Substance: BETAMETHASONE SODIUM PHOSPHATE
     Indication: SUICIDE ATTEMPT
     Dosage: 500 MG, SINGLE
     Route: 048
     Dates: start: 20160827, end: 20160827
  4. OXYCONTIN [Suspect]
     Active Substance: OXYCODONE HYDROCHLORIDE
     Indication: SUICIDE ATTEMPT
     Dosage: 120 MG
     Route: 048
     Dates: start: 20160827, end: 20160827
  5. OXYCONTIN [Suspect]
     Active Substance: OXYCODONE HYDROCHLORIDE
     Indication: PAIN
  6. ALVEDON [Suspect]
     Active Substance: ACETAMINOPHEN
     Indication: SUICIDE ATTEMPT
     Dosage: 53.2 G, SINGLE
     Route: 048
     Dates: start: 20160827, end: 20160827
  7. ALCOHOL. [Suspect]
     Active Substance: ALCOHOL
     Indication: SUICIDE ATTEMPT
     Dosage: UNK
     Route: 048
     Dates: start: 20160827, end: 20160827
  8. PARAFLEX [Concomitant]
     Active Substance: CHLORZOXAZONE
  9. CITALOPRAM [Suspect]
     Active Substance: CITALOPRAM HYDROBROMIDE
     Indication: SUICIDE ATTEMPT
     Dosage: 800 MG, SINGLE
     Route: 048
     Dates: start: 20160827, end: 20160827
  10. SAROTEN [Concomitant]
     Active Substance: AMITRIPTYLINE
  11. STILNOCT [Concomitant]
     Active Substance: ZOLPIDEM TARTRATE

REACTIONS (9)
  - Suicide attempt [Recovered/Resolved]
  - International normalised ratio increased [Unknown]
  - Analgesic drug level increased [Recovered/Resolved]
  - Gamma-glutamyltransferase increased [Recovering/Resolving]
  - Blood lactate dehydrogenase increased [Unknown]
  - Aspartate aminotransferase increased [Recovering/Resolving]
  - Alanine aminotransferase [Recovering/Resolving]
  - Overdose [Recovered/Resolved]
  - Toxicity to various agents [Recovered/Resolved]

NARRATIVE: CASE EVENT DATE: 201608
